FAERS Safety Report 20357658 (Version 1)
Quarter: 2022Q1

REPORT INFORMATION
  Report Type: Spontaneous
  Country: US (occurrence: US)
  Receive Date: 20220120
  Receipt Date: 20220120
  Transmission Date: 20220424
  Serious: No
  Sender: FDA-Public Use
  Company Number: US-NOVOPROD-840801

PATIENT
  Sex: Male

DRUGS (3)
  1. OZEMPIC [Suspect]
     Active Substance: SEMAGLUTIDE
     Dosage: ONE-HALF DOSE FOR 4 WEEKS
     Route: 058
  2. OZEMPIC [Suspect]
     Active Substance: SEMAGLUTIDE
     Indication: Product used for unknown indication
     Dosage: 1 MG, ONE-HALF DOSE FOR 4 WEEKS, 3/4 DOSE FOR 4 WEEKS
     Route: 058
  3. OZEMPIC [Suspect]
     Active Substance: SEMAGLUTIDE
     Dosage: 3/4 DOSE FOR 4 WEEKS
     Route: 058

REACTIONS (2)
  - Retching [Not Recovered/Not Resolved]
  - Off label use [Not Recovered/Not Resolved]
